FAERS Safety Report 16371560 (Version 1)
Quarter: 2019Q2

REPORT INFORMATION
  Report Type: Spontaneous
  Country: US (occurrence: US)
  Receive Date: 20190530
  Receipt Date: 20190530
  Transmission Date: 20190711
  Serious: No
  Sender: FDA-Public Use
  Company Number: US-PFIZER INC-2019225468

PATIENT
  Age: 56 Year
  Sex: Male

DRUGS (1)
  1. SOLU-MEDROL [Suspect]
     Active Substance: METHYLPREDNISOLONE SODIUM SUCCINATE
     Indication: ASTHMA
     Dosage: 2 ML, UNK [125 MG IN 2 ML]
     Route: 030

REACTIONS (4)
  - Administration site pain [Unknown]
  - Incorrect route of product administration [Unknown]
  - Burning sensation [Unknown]
  - Muscle spasms [Unknown]
